FAERS Safety Report 7807474-4 (Version None)
Quarter: 2011Q4

REPORT INFORMATION
  Report Type: 
  Country: None (occurrence: None)
  Receive Date: 20111011
  Receipt Date: 20111006
  Transmission Date: 20120403
  Serious: Yes (Hospitalization, Other)
  Sender: FDA-Public Use
  Company Number: PHHY2009CA39746

PATIENT
  Sex: Male

DRUGS (16)
  1. SANDOSTATIN [Suspect]
     Indication: NEUROENDOCRINE TUMOUR
     Dosage: 100 UG, TID
     Route: 058
     Dates: start: 20110201, end: 20110214
  2. ASPIRIN [Concomitant]
  3. INSULIN [Concomitant]
  4. PANTOPRAZOLE SODIUM [Concomitant]
     Dosage: 40 MG, 3 PILLS BID
  5. SANDOSTATIN LAR [Suspect]
     Dosage: 40 MG EVERY THREE WEEKS
     Route: 030
     Dates: end: 20110521
  6. FRAGMIN [Concomitant]
  7. SANDOSTATIN LAR [Suspect]
     Indication: NEUROENDOCRINE TUMOUR
     Dosage: 30 MG, EVERY 4 WEEKS
     Route: 030
     Dates: start: 20090910
  8. SANDOSTATIN LAR [Suspect]
     Dosage: 40 MG, QMO
     Route: 030
  9. AFINITOR [Suspect]
     Indication: NEUROENDOCRINE TUMOUR
     Dosage: 10 MG, DAILY
     Route: 048
  10. MESALAMINE [Concomitant]
  11. SANDOSTATIN [Suspect]
     Dosage: 150 UG, BID
     Dates: start: 20110214, end: 20110217
  12. SANDOSTATIN [Suspect]
     Dosage: 250 UG, BID
     Route: 058
     Dates: start: 20110608
  13. SANDOSTATIN LAR [Suspect]
     Dosage: 40 MG, EVERY 4 WEEKS
     Route: 030
  14. SANDOSTATIN [Suspect]
     Dosage: 500 UG, BID
     Route: 058
     Dates: start: 20110825
  15. SANDOSTATIN [Suspect]
     Dosage: 500 UG, TID
     Route: 058
  16. SANDOSTATIN LAR [Suspect]
     Dosage: 30 MG, TIW
     Route: 030

REACTIONS (21)
  - HAEMATEMESIS [None]
  - NAUSEA [None]
  - HYPOPHAGIA [None]
  - HOT FLUSH [None]
  - DIARRHOEA [None]
  - COUGH [None]
  - INJECTION SITE INDURATION [None]
  - ERYTHEMA [None]
  - WEIGHT DECREASED [None]
  - GASTRITIS [None]
  - INFECTION [None]
  - VOMITING [None]
  - INJECTION SITE PAIN [None]
  - OROPHARYNGEAL PAIN [None]
  - SKIN BURNING SENSATION [None]
  - INJECTION SITE MASS [None]
  - DECREASED APPETITE [None]
  - ABDOMINAL DISCOMFORT [None]
  - ABDOMINAL PAIN [None]
  - NASOPHARYNGITIS [None]
  - RASH MACULO-PAPULAR [None]
